FAERS Safety Report 16324337 (Version 1)
Quarter: 2019Q2

REPORT INFORMATION
  Report Type: Spontaneous
  Country: US (occurrence: US)
  Receive Date: 20190517
  Receipt Date: 20190517
  Transmission Date: 20190711
  Serious: Yes (Other)
  Sender: FDA-Public Use
  Company Number: US-ACCORD-127717

PATIENT
  Age: 74 Year
  Sex: Female

DRUGS (1)
  1. ETOPOSIDE. [Suspect]
     Active Substance: ETOPOSIDE
     Indication: NASAL SINUS CANCER

REACTIONS (3)
  - Pneumocephalus [Unknown]
  - Off label use [Unknown]
  - Cerebrospinal fluid leakage [Unknown]
